FAERS Safety Report 18968004 (Version 1)
Quarter: 2021Q1

REPORT INFORMATION
  Report Type: Spontaneous
  Country: US (occurrence: US)
  Receive Date: 20210303
  Receipt Date: 20210303
  Transmission Date: 20210420
  Serious: Yes (Death)
  Sender: FDA-Public Use
  Company Number: None

PATIENT
  Age: 47 Year
  Sex: Male
  Weight: 81.65 kg

DRUGS (3)
  1. IVERMECTIN. [Concomitant]
     Active Substance: IVERMECTIN
  2. REMDESIVIR 100MG [Suspect]
     Active Substance: REMDESIVIR
     Indication: COVID-19
     Dosage: ?          OTHER DOSE:200 MG X1 + 100 MG;OTHER ROUTE:IVPB?
     Dates: start: 20200625, end: 20200629
  3. ACTEMRA [Suspect]
     Active Substance: TOCILIZUMAB
     Indication: COVID-19
     Dosage: ?          OTHER ROUTE:IVPB?
     Route: 042
     Dates: start: 20200626, end: 20200626

REACTIONS (1)
  - Death [None]

NARRATIVE: CASE EVENT DATE: 20200704
